FAERS Safety Report 5873979-9 (Version None)
Quarter: 2008Q3

REPORT INFORMATION
  Report Type: 
  Country: None (occurrence: None)
  Receive Date: 20080908
  Receipt Date: 20080904
  Transmission Date: 20090109
  Serious: Yes (Life-Threatening, Hospitalization)
  Sender: FDA-Public Use
  Company Number: US-MERCK-0806USA02496

PATIENT
  Age: 39 Year
  Sex: Male
  Weight: 67 kg

DRUGS (6)
  1. ISENTRESS [Suspect]
     Indication: HIV INFECTION
     Route: 048
     Dates: start: 20080401
  2. NORVIR [Concomitant]
     Route: 065
     Dates: start: 20080401
  3. EPZICOM [Concomitant]
     Route: 065
     Dates: start: 20080401
  4. BACTRIM [Concomitant]
     Route: 065
  5. ZITHROMAX [Concomitant]
     Route: 065
  6. PREZISTA [Concomitant]
     Route: 065
     Dates: start: 20080401

REACTIONS (3)
  - FATIGUE [None]
  - HAEMOGLOBIN DECREASED [None]
  - LYMPHOMA [None]
